FAERS Safety Report 6437920-2 (Version None)
Quarter: 2009Q4

REPORT INFORMATION
  Report Type: 
  Country: None (occurrence: None)
  Receive Date: 20091112
  Receipt Date: 20091104
  Transmission Date: 20100525
  Serious: Yes (Other)
  Sender: FDA-Public Use
  Company Number: DE-PFIZER INC-2009292847

PATIENT
  Age: 68 Year
  Sex: Male

DRUGS (4)
  1. SORTIS [Suspect]
     Indication: TYPE IIA HYPERLIPIDAEMIA
     Dosage: 20 MG/DAY
     Route: 048
     Dates: start: 19900101
  2. SORTIS [Suspect]
     Dosage: 40 MG/DAY
     Route: 048
  3. MAGNESIUM [Concomitant]
     Indication: DRUG USE FOR UNKNOWN INDICATION
  4. L-THYROXIN [Concomitant]
     Indication: THYROID HORMONE REPLACEMENT THERAPY

REACTIONS (3)
  - MUSCLE ATROPHY [None]
  - MUSCLE CONTRACTIONS INVOLUNTARY [None]
  - NEUROPATHY PERIPHERAL [None]
